FAERS Safety Report 21576396 (Version 15)
Quarter: 2024Q3

REPORT INFORMATION
  Report Type: Spontaneous
  Country: CA (occurrence: CA)
  Receive Date: 20221110
  Receipt Date: 20240905
  Transmission Date: 20241016
  Serious: Yes (Hospitalization, Other)
  Sender: CELLTRION
  Company Number: CA-CELLTRION INC.-2022CA004584

PATIENT

DRUGS (22)
  1. INFLECTRA [Suspect]
     Active Substance: INFLIXIMAB-DYYB
     Indication: Colitis ulcerative
     Dosage: 5 MG/KG 0, 2, 6 THEN EVERY 8 WEEKS AS PER CURRENT WEIGHT
     Route: 042
     Dates: start: 20220127
  2. INFLECTRA [Suspect]
     Active Substance: INFLIXIMAB-DYYB
     Dosage: 5 MG/KG EVERY 8 WEEK AT 0, 2, 6 THEN EVERY 8 WEEKS
     Route: 042
     Dates: start: 20220127, end: 20230215
  3. INFLECTRA [Suspect]
     Active Substance: INFLIXIMAB-DYYB
     Dosage: 5 MG/KG, 0, 2, 6 THEN EVERY 8 WEEKS AS PER CURRENT WEIGHT.
     Route: 042
     Dates: start: 20220309
  4. INFLECTRA [Suspect]
     Active Substance: INFLIXIMAB-DYYB
     Dosage: 5 MG/KG, 0, 2, 6 THEN EVERY 8 WEEKS AS PER CURRENT WEIGHT.
     Route: 042
     Dates: start: 20220504
  5. INFLECTRA [Suspect]
     Active Substance: INFLIXIMAB-DYYB
     Dosage: 5 MG/KG, 0, 2, 6 THEN EVERY 8 WEEKS AS PER CURRENT WEIGHT.
     Route: 042
     Dates: start: 20220706
  6. INFLECTRA [Suspect]
     Active Substance: INFLIXIMAB-DYYB
     Dosage: 5 MG/KG, 0, 2, 6 THEN EVERY 8 WEEKS
     Route: 042
     Dates: start: 20220830
  7. INFLECTRA [Suspect]
     Active Substance: INFLIXIMAB-DYYB
     Dosage: 5 MG/KG, 0, 2, 6 THEN EVERY 8 WEEKS
     Route: 042
     Dates: start: 20221026
  8. INFLECTRA [Suspect]
     Active Substance: INFLIXIMAB-DYYB
     Dosage: 5 MG/KG, 0, 2, 6 THEN EVERY 8 WEEKS
     Route: 042
     Dates: start: 20221221
  9. INFLECTRA [Suspect]
     Active Substance: INFLIXIMAB-DYYB
     Dosage: 5MG/KG EVERY 8 WEEKS (AT 0, 2, 6 THEN EVERY 8 WEEKS)
     Route: 042
     Dates: start: 20230215
  10. INFLECTRA [Suspect]
     Active Substance: INFLIXIMAB-DYYB
     Dosage: 420 MG, 10MG/KG EVERY 8 WEEKS
     Route: 042
     Dates: start: 20230413
  11. INFLECTRA [Suspect]
     Active Substance: INFLIXIMAB-DYYB
     Dosage: 10 MG/KG, EVERY 8 WEEKS
     Route: 042
     Dates: start: 20230607
  12. INFLECTRA [Suspect]
     Active Substance: INFLIXIMAB-DYYB
     Dosage: 430 MG, 7 WEEKS AND 6 DAYS (SUPPOSED TO RECEIVE EVERY 8 WEEKS)
     Route: 042
     Dates: start: 20230801
  13. INFLECTRA [Suspect]
     Active Substance: INFLIXIMAB-DYYB
     Dosage: 430 MG, 7 WEEKS AND 6 DAYS (SUPPOSED TO RECEIVE EVERY 8 WEEKS)
     Route: 042
     Dates: start: 20230801
  14. INFLECTRA [Suspect]
     Active Substance: INFLIXIMAB-DYYB
     Dosage: 10 MG/KG (420 MG), EVERY 8 WEEKS
     Route: 042
     Dates: start: 20230927
  15. INFLECTRA [Suspect]
     Active Substance: INFLIXIMAB-DYYB
     Dosage: 450 MG (AFTER 8 WEEKS)
     Route: 042
     Dates: start: 20231122
  16. INFLECTRA [Suspect]
     Active Substance: INFLIXIMAB-DYYB
     Dosage: 10 MG/KG, EVERY 8 WEEKS ( 460 MG, 7 WEEKS AND 6 DAYS )
     Route: 042
     Dates: start: 20240116
  17. INFLECTRA [Suspect]
     Active Substance: INFLIXIMAB-DYYB
     Dosage: 10 MG/KG, EVERY 8 WEEKS ( 460 MG, 7 WEEKS AND 6 DAYS )
     Route: 042
     Dates: start: 20240312
  18. INFLECTRA [Suspect]
     Active Substance: INFLIXIMAB-DYYB
     Dosage: 10 MG/KG, EVERY 8 WEEKS ( 460MG, 8 WEEKS )
     Route: 042
     Dates: start: 20240507
  19. INFLECTRA [Suspect]
     Active Substance: INFLIXIMAB-DYYB
     Dosage: 460 MG, 8 WEEKS (10 MG/KG, EVERY 8 WEEKS)
     Route: 042
     Dates: start: 20240702
  20. INFLECTRA [Suspect]
     Active Substance: INFLIXIMAB-DYYB
     Dosage: AFTER 8 WEEKS
     Route: 042
     Dates: start: 20240827
  21. CLONAZEPAM [Concomitant]
     Active Substance: CLONAZEPAM
     Dosage: UNK
  22. QUETIAPINE [Concomitant]
     Active Substance: QUETIAPINE
     Dosage: UNK

REACTIONS (30)
  - Pneumonia [Recovered/Resolved]
  - Hallucination [Recovered/Resolved]
  - Clostridium difficile infection [Recovered/Resolved]
  - Bacterial sepsis [Recovered/Resolved]
  - Bronchitis [Recovered/Resolved]
  - Tremor [Recovered/Resolved]
  - Drug abuse [Recovering/Resolving]
  - Haematochezia [Recovered/Resolved]
  - Sinusitis [Recovered/Resolved]
  - Urinary tract infection [Unknown]
  - Vaginal infection [Unknown]
  - Abdominal pain [Not Recovered/Not Resolved]
  - Alcohol use [Unknown]
  - Condition aggravated [Not Recovered/Not Resolved]
  - Drug level decreased [Unknown]
  - Weight decreased [Not Recovered/Not Resolved]
  - Eating disorder [Not Recovered/Not Resolved]
  - Vomiting [Not Recovered/Not Resolved]
  - Headache [Not Recovered/Not Resolved]
  - Gastroenteritis [Unknown]
  - Condition aggravated [Not Recovered/Not Resolved]
  - Nasopharyngitis [Not Recovered/Not Resolved]
  - Nasal congestion [Not Recovered/Not Resolved]
  - COVID-19 [Recovered/Resolved]
  - Constipation [Not Recovered/Not Resolved]
  - Nausea [Recovered/Resolved]
  - Maternal exposure during pregnancy [Unknown]
  - Haemorrhoids [Not Recovered/Not Resolved]
  - Off label use [Unknown]
  - Premature labour [Recovered/Resolved]

NARRATIVE: CASE EVENT DATE: 20220101
